FAERS Safety Report 25216150 (Version 5)
Quarter: 2025Q2

REPORT INFORMATION
  Report Type: Spontaneous
  Country: CA (occurrence: CA)
  Receive Date: 20250418
  Receipt Date: 20250526
  Transmission Date: 20250717
  Serious: Yes (Other)
  Sender: ASTELLAS
  Company Number: CA-PFIZER INC-PV202500041157

PATIENT
  Age: 57 Year
  Sex: Female
  Weight: 60.5 kg

DRUGS (3)
  1. PADCEV [Suspect]
     Active Substance: ENFORTUMAB VEDOTIN-EJFV
     Indication: Transitional cell carcinoma metastatic
     Route: 042
     Dates: start: 20250401
  2. PADCEV [Suspect]
     Active Substance: ENFORTUMAB VEDOTIN-EJFV
     Route: 042
     Dates: start: 20250429
  3. KEYTRUDA [Concomitant]
     Active Substance: PEMBROLIZUMAB
     Indication: Transitional cell carcinoma metastatic
     Dosage: 200 MG, EVERY 3 WEEKS
     Route: 065

REACTIONS (9)
  - Fatigue [Not Recovered/Not Resolved]
  - Dysphagia [Recovering/Resolving]
  - Constipation [Unknown]
  - Pain [Unknown]
  - Dyspnoea [Not Recovered/Not Resolved]
  - Rash macular [Recovering/Resolving]
  - Nausea [Not Recovered/Not Resolved]
  - Lymphadenopathy [Recovering/Resolving]
  - Skin disorder [Unknown]

NARRATIVE: CASE EVENT DATE: 20250401
